FAERS Safety Report 8449961-4 (Version None)
Quarter: 2012Q2

REPORT INFORMATION
  Report Type: 
  Country: None (occurrence: None)
  Receive Date: 20120620
  Receipt Date: 20120615
  Transmission Date: 20120825
  Serious: Yes (Hospitalization)
  Sender: FDA-Public Use
  Company Number: PHEH2012US008750

PATIENT
  Sex: Male

DRUGS (1)
  1. CLOZARIL [Suspect]
     Dosage: UNK UKN, UNK

REACTIONS (3)
  - FALL [None]
  - WHITE BLOOD CELL COUNT INCREASED [None]
  - LACERATION [None]
